FAERS Safety Report 14419465 (Version 1)
Quarter: 2018Q1

REPORT INFORMATION
  Report Type: Spontaneous
  Country: US (occurrence: US)
  Receive Date: 20180121
  Receipt Date: 20180121
  Transmission Date: 20180509
  Serious: No
  Sender: FDA-Public Use
  Company Number: None

PATIENT
  Sex: Female
  Weight: 85.5 kg

DRUGS (19)
  1. SERTRALINE [Concomitant]
     Active Substance: SERTRALINE HYDROCHLORIDE
  2. CLONAZAPAM [Concomitant]
     Active Substance: CLONAZEPAM
  3. VISTARIL [Concomitant]
     Active Substance: HYDROXYZINE PAMOATE
  4. RIZATRIPTAN. [Concomitant]
     Active Substance: RIZATRIPTAN
  5. CLARITIN [Concomitant]
     Active Substance: LORATADINE
  6. BENADRYL [Suspect]
     Active Substance: DIPHENHYDRAMINE HYDROCHLORIDE
  7. METOPROLOL. [Concomitant]
     Active Substance: METOPROLOL
  8. PANTOPRAZOL [Concomitant]
     Active Substance: PANTOPRAZOLE SODIUM
  9. VITAMIN B/D [Concomitant]
  10. BUSPIRONE [Concomitant]
     Active Substance: BUSPIRONE HYDROCHLORIDE
  11. OXYCODONE [Concomitant]
     Active Substance: OXYCODONE
  12. DICLOFENAC [Concomitant]
     Active Substance: DICLOFENAC
  13. BENADRYL [Suspect]
     Active Substance: DIPHENHYDRAMINE HYDROCHLORIDE
     Indication: MIGRAINE
  14. LOOP RECORDER [Concomitant]
  15. CALCIUM [Concomitant]
     Active Substance: CALCIUM
  16. BENADRYL [Suspect]
     Active Substance: DIPHENHYDRAMINE HYDROCHLORIDE
     Indication: SLEEP DISORDER
  17. LEVOTHYROXIN [Concomitant]
     Active Substance: LEVOTHYROXINE
  18. MAGNESIUM [Concomitant]
     Active Substance: MAGNESIUM
  19. BENADRYL GENERIC WALMART BRAND [Suspect]
     Active Substance: DIPHENHYDRAMINE

REACTIONS (5)
  - Feeling jittery [None]
  - Somnolence [None]
  - Hypersensitivity [None]
  - Dyskinesia [None]
  - Restlessness [None]
